FAERS Safety Report 24464149 (Version 1)
Quarter: 2024Q4

REPORT INFORMATION
  Report Type: Report from Study
  Country: US (occurrence: US)
  Receive Date: 20241018
  Receipt Date: 20241018
  Transmission Date: 20250115
  Serious: Yes (Death, Hospitalization, Other)
  Sender: SANDOZ
  Company Number: US-002147023-NVSC2022US219937

PATIENT
  Age: 82 Year
  Sex: Female
  Weight: 42.63 kg

DRUGS (18)
  1. TREPROSTINIL [Suspect]
     Active Substance: TREPROSTINIL
     Dosage: 15 NG/KG/MIN, CONT
     Route: 042
  2. TREPROSTINIL [Suspect]
     Active Substance: TREPROSTINIL
     Dosage: 10 NG/KG/MIN, CONT
     Route: 042
     Dates: start: 20220923
  3. TREPROSTINIL [Suspect]
     Active Substance: TREPROSTINIL
     Dosage: 11.25 NG/KG/MIN, CONT
     Route: 042
     Dates: start: 20220923
  4. TREPROSTINIL [Suspect]
     Active Substance: TREPROSTINIL
     Indication: Pulmonary arterial hypertension
     Dosage: 6.25 NG/KG/MIN, CONT
     Route: 042
     Dates: start: 20220923
  5. TREPROSTINIL [Suspect]
     Active Substance: TREPROSTINIL
     Dosage: 15 NG/KG/MIN, CONT
     Route: 042
  6. TREPROSTINIL [Suspect]
     Active Substance: TREPROSTINIL
     Dosage: 16.25 NG/KG/MIN, CONT
     Route: 042
  7. BUMETANIDE [Concomitant]
     Active Substance: BUMETANIDE
     Indication: Product used for unknown indication
     Route: 065
  8. BUMETANIDE [Concomitant]
     Active Substance: BUMETANIDE
     Indication: Product used for unknown indication
     Route: 065
  9. METOLAZONE [Concomitant]
     Active Substance: METOLAZONE
     Indication: Product used for unknown indication
     Route: 065
  10. METOLAZONE [Concomitant]
     Active Substance: METOLAZONE
     Indication: Product used for unknown indication
     Route: 065
  11. MIDODRINE HYDROCHLORIDE [Concomitant]
     Active Substance: MIDODRINE HYDROCHLORIDE
     Indication: Product used for unknown indication
     Route: 065
  12. MIDODRINE HYDROCHLORIDE [Concomitant]
     Active Substance: MIDODRINE HYDROCHLORIDE
     Indication: Product used for unknown indication
     Route: 065
  13. VITAMINS [Concomitant]
     Active Substance: VITAMINS
     Indication: Product used for unknown indication
     Route: 065
  14. NEXIUM [Concomitant]
     Active Substance: ESOMEPRAZOLE MAGNESIUM
     Indication: Product used for unknown indication
     Route: 065
  15. NEXIUM [Concomitant]
     Active Substance: ESOMEPRAZOLE MAGNESIUM
     Indication: Product used for unknown indication
     Route: 065
  16. PULMICORT FLEXHALER [Concomitant]
     Active Substance: BUDESONIDE
     Indication: Product used for unknown indication
     Route: 065
  17. REMODULIN [Concomitant]
     Active Substance: TREPROSTINIL
     Indication: Product used for unknown indication
     Dosage: UNK
     Route: 065
  18. TADALAFIL [Concomitant]
     Active Substance: TADALAFIL
     Indication: Product used for unknown indication
     Dosage: UNK
     Route: 065

REACTIONS (23)
  - Death [Fatal]
  - Parainfluenzae virus infection [Unknown]
  - White blood cell count increased [Unknown]
  - Restless legs syndrome [Unknown]
  - Dyspnoea [Unknown]
  - Decreased appetite [Unknown]
  - Fluid retention [Unknown]
  - Weight decreased [Unknown]
  - Blood potassium decreased [Unknown]
  - Influenza [Recovering/Resolving]
  - Pneumonia [Recovered/Resolved]
  - Dyspnoea [Recovered/Resolved]
  - Cough [Recovered/Resolved]
  - Pulmonary oedema [Recovered/Resolved]
  - Hypervolaemia [Unknown]
  - Malaise [Unknown]
  - Catheter site discharge [Unknown]
  - Cystitis [Unknown]
  - Catheter site haemorrhage [Unknown]
  - Epistaxis [Unknown]
  - Headache [Unknown]
  - Fatigue [Unknown]
  - Dyspnoea exertional [Unknown]

NARRATIVE: CASE EVENT DATE: 20230108
